FAERS Safety Report 20141786 (Version 2)
Quarter: 2021Q4

REPORT INFORMATION
  Report Type: Report from Study
  Country: ES (occurrence: ES)
  Receive Date: 20211202
  Receipt Date: 20211228
  Transmission Date: 20220303
  Serious: Yes (Other)
  Sender: FDA-Public Use
  Company Number: ES-TAKEDA-ES201946093

PATIENT
  Age: 47 Year
  Sex: Male
  Weight: 64.5 kg

DRUGS (28)
  1. TEDUGLUTIDE [Suspect]
     Active Substance: TEDUGLUTIDE
     Indication: Short-bowel syndrome
     Dosage: 3.2 MILLIGRAM/KILOGRAM, QD
     Route: 065
     Dates: start: 20180209
  2. TEDUGLUTIDE [Suspect]
     Active Substance: TEDUGLUTIDE
     Indication: Short-bowel syndrome
     Dosage: 3.2 MILLIGRAM/KILOGRAM, QD
     Route: 065
     Dates: start: 20180209
  3. TEDUGLUTIDE [Suspect]
     Active Substance: TEDUGLUTIDE
     Indication: Short-bowel syndrome
     Dosage: 3.2 MILLIGRAM/KILOGRAM, QD
     Route: 065
     Dates: start: 20180209
  4. TEDUGLUTIDE [Suspect]
     Active Substance: TEDUGLUTIDE
     Indication: Short-bowel syndrome
     Dosage: 3.2 MILLIGRAM/KILOGRAM, QD
     Route: 065
     Dates: start: 20180209
  5. TEDUGLUTIDE [Suspect]
     Active Substance: TEDUGLUTIDE
     Dosage: 3.2 MILLIGRAM, QD
     Route: 065
     Dates: start: 20180209
  6. TEDUGLUTIDE [Suspect]
     Active Substance: TEDUGLUTIDE
     Dosage: 3.2 MILLIGRAM, QD
     Route: 065
     Dates: start: 20180209
  7. TEDUGLUTIDE [Suspect]
     Active Substance: TEDUGLUTIDE
     Dosage: 3.2 MILLIGRAM, QD
     Route: 065
     Dates: start: 20180209
  8. TEDUGLUTIDE [Suspect]
     Active Substance: TEDUGLUTIDE
     Dosage: 3.2 MILLIGRAM, QD
     Route: 065
     Dates: start: 20180209
  9. MAGNESIUM LACTATE [Concomitant]
     Active Substance: MAGNESIUM LACTATE
     Dosage: UNK UNK, BID
     Route: 065
     Dates: start: 20030320
  10. POTASSIUM CITRATE [Concomitant]
     Active Substance: POTASSIUM CITRATE
     Dosage: UNK, BID
     Route: 065
     Dates: start: 20030320
  11. ZINC SULFATE [Concomitant]
     Active Substance: ZINC SULFATE
     Dosage: 50 MILLIGRAM, QOD
     Route: 065
     Dates: start: 20030320
  12. FLAGYL [Concomitant]
     Active Substance: METRONIDAZOLE\METRONIDAZOLE HYDROCHLORIDE
     Dosage: 250 MILLIGRAM, PRN
     Route: 065
     Dates: start: 20030320
  13. CALCIUM CARBONATE\CHOLECALCIFEROL [Concomitant]
     Active Substance: CALCIUM CARBONATE\CHOLECALCIFEROL
     Dosage: 1 MILLIGRAM, QD
     Route: 065
     Dates: start: 20030320
  14. CHOLECALCIFEROL [Concomitant]
     Active Substance: CHOLECALCIFEROL
     Dosage: 1 MILLIGRAM, 1/WEEK
     Route: 065
     Dates: start: 20171114
  15. CALCIFEDIOL [Concomitant]
     Active Substance: CALCIFEDIOL
     Dosage: 266 MILLIGRAM, 1/WEEK
     Route: 065
     Dates: start: 20130326, end: 20171114
  16. CYANOCOBALAMIN [Concomitant]
     Active Substance: CYANOCOBALAMIN
     Dosage: 1000 MICROGRAM
     Route: 065
     Dates: start: 20130326
  17. FOLIC ACID [Concomitant]
     Active Substance: FOLIC ACID
     Dosage: 5 MILLIGRAM
     Route: 065
     Dates: start: 20171114
  18. ACETAMINOPHEN [Concomitant]
     Active Substance: ACETAMINOPHEN
     Dosage: 1 GRAM
     Route: 065
     Dates: start: 20181003, end: 20181204
  19. METAMIZOLE [Concomitant]
     Active Substance: METAMIZOLE
     Indication: Renal colic
     Dosage: UNK, TID
     Route: 065
     Dates: start: 20181003, end: 20181004
  20. METAMIZOLE [Concomitant]
     Active Substance: METAMIZOLE
     Dosage: 575 MILLIGRAM, TID
     Route: 048
     Dates: start: 20210407, end: 20210412
  21. TRAMADOL [Concomitant]
     Active Substance: TRAMADOL
     Dosage: UNK
     Route: 065
     Dates: start: 20181003, end: 20181004
  22. ONDANSETRON [Concomitant]
     Active Substance: ONDANSETRON
     Dosage: UNK
     Route: 065
     Dates: start: 20181003, end: 20181004
  23. TAMSULOSIN [Concomitant]
     Active Substance: TAMSULOSIN
     Dosage: UNK, QD
     Route: 065
     Dates: start: 20191011
  24. CEFUROXIME [Concomitant]
     Active Substance: CEFUROXIME
     Dosage: 500 MILLIGRAM, BID
     Route: 065
     Dates: start: 20191106
  25. OMEPRAZOLE [Concomitant]
     Active Substance: OMEPRAZOLE
     Indication: Dyspepsia
     Dosage: 20 MILLIGRAM, QD
     Route: 048
     Dates: start: 20210114
  26. Cefuroxima [Concomitant]
     Indication: Urinary tract infection
     Dosage: 500 MILLIGRAM, BID
     Route: 048
     Dates: start: 20200612, end: 20200622
  27. Cefuroxima [Concomitant]
     Dosage: 500 MILLIGRAM, BID
     Route: 048
     Dates: start: 20191106, end: 20200622
  28. DEXKETOPROFEN TROMETAMOL [Concomitant]
     Active Substance: DEXKETOPROFEN TROMETAMOL
     Indication: Renal colic
     Dosage: 25 MILLIGRAM, TID
     Route: 048
     Dates: start: 20210407, end: 20210412

REACTIONS (1)
  - Rectal haemorrhage [Recovered/Resolved]

NARRATIVE: CASE EVENT DATE: 20181224
